FAERS Safety Report 14870270 (Version 1)
Quarter: 2018Q2

REPORT INFORMATION
  Report Type: Spontaneous
  Country: US (occurrence: US)
  Receive Date: 20180509
  Receipt Date: 20180509
  Transmission Date: 20180711
  Serious: No
  Sender: FDA-Public Use
  Company Number: US-SA-2018SA078650

PATIENT
  Age: 54 Year
  Sex: Female
  Weight: 135 kg

DRUGS (1)
  1. XYZAL ALLERGY 24HR [Suspect]
     Active Substance: LEVOCETIRIZINE DIHYDROCHLORIDE
     Indication: MULTIPLE ALLERGIES
     Route: 048
     Dates: start: 20180308, end: 20180308

REACTIONS (5)
  - Somnolence [Unknown]
  - Pruritus [Unknown]
  - Sleep disorder [Unknown]
  - Laceration [Unknown]
  - Rash [Unknown]

NARRATIVE: CASE EVENT DATE: 20180309
